FAERS Safety Report 13870126 (Version 1)
Quarter: 2017Q3

REPORT INFORMATION
  Report Type: Other
  Country: FR (occurrence: FR)
  Receive Date: 20170815
  Receipt Date: 20170815
  Transmission Date: 20171127
  Serious: Yes (Hospitalization)
  Sender: FDA-Public Use
  Company Number: FR-GEHC-2017CSU002475

PATIENT

DRUGS (10)
  1. OMNIPAQUE [Suspect]
     Active Substance: IOHEXOL
     Indication: STATUS EPILEPTICUS
     Dosage: 70 ML, SINGLE
     Route: 042
     Dates: start: 20141209, end: 20141209
  2. VALIUM [Concomitant]
     Active Substance: DIAZEPAM
     Indication: PRODUCT USED FOR UNKNOWN INDICATION
  3. PRODILANTIN [Concomitant]
     Active Substance: FOSPHENYTOIN SODIUM
     Indication: STATUS EPILEPTICUS
     Dosage: 1050 MG, UNK
     Dates: start: 20141209
  4. LAMICTAL [Concomitant]
     Active Substance: LAMOTRIGINE
     Indication: PRODUCT USED FOR UNKNOWN INDICATION
  5. KARDEGIC [Concomitant]
     Active Substance: ASPIRIN LYSINE
     Indication: PRODUCT USED FOR UNKNOWN INDICATION
  6. RIVOTRIL [Concomitant]
     Active Substance: CLONAZEPAM
     Indication: STATUS EPILEPTICUS
     Dosage: 2 MG, UNK
     Dates: start: 20141209
  7. BISOPROLOL [Concomitant]
     Active Substance: BISOPROLOL
     Indication: PRODUCT USED FOR UNKNOWN INDICATION
  8. RIVOTRIL [Concomitant]
     Active Substance: CLONAZEPAM
     Indication: PRODUCT USED FOR UNKNOWN INDICATION
  9. CRESTOR [Concomitant]
     Active Substance: ROSUVASTATIN CALCIUM
     Indication: PRODUCT USED FOR UNKNOWN INDICATION
  10. ROCEPHINE [Concomitant]
     Active Substance: CEFTRIAXONE SODIUM
     Indication: STATUS EPILEPTICUS
     Dosage: 2 G, UNK
     Route: 042
     Dates: start: 20141209

REACTIONS (2)
  - Renal tubular necrosis [Recovered/Resolved]
  - Acute kidney injury [Recovered/Resolved]

NARRATIVE: CASE EVENT DATE: 20141212
